FAERS Safety Report 13239128 (Version 1)
Quarter: 2017Q1

REPORT INFORMATION
  Report Type: Spontaneous
  Country: BR (occurrence: BR)
  Receive Date: 20170216
  Receipt Date: 20170216
  Transmission Date: 20170428
  Serious: Yes (Other)
  Sender: FDA-Public Use
  Company Number: BR-PFIZER INC-2017062783

PATIENT
  Age: 58 Year
  Sex: Male
  Weight: 92 kg

DRUGS (7)
  1. ATORVASTATIN CALCIUM. [Suspect]
     Active Substance: ATORVASTATIN CALCIUM
     Dosage: UNK
     Dates: start: 2013
  2. LOSARTAN POTASSIUM. [Concomitant]
     Active Substance: LOSARTAN POTASSIUM
     Dosage: 2 DF, DAILY 2 TABLETS PER DAY
     Dates: start: 2013
  3. GLIFAGE [Concomitant]
     Active Substance: METFORMIN HYDROCHLORIDE
     Indication: DIABETES MELLITUS
     Dosage: 1700 MG, DAILY 2 TABLETS PER DAY
     Dates: start: 2013
  4. ASPIRINA [Concomitant]
     Active Substance: ASPIRIN
     Dosage: UNK
     Dates: start: 2013
  5. LIPITOR [Suspect]
     Active Substance: ATORVASTATIN CALCIUM
     Dosage: UNK
     Route: 048
     Dates: start: 2013
  6. SELOZOK [Concomitant]
     Active Substance: METOPROLOL SUCCINATE
     Dosage: 100 MG, DAILY 4 TABLETS PER DAY
     Dates: start: 2013
  7. DIAMICRON [Concomitant]
     Active Substance: GLICLAZIDE
     Dosage: 1 TABLET BEFORE THE MEALS
     Dates: start: 2013

REACTIONS (5)
  - Pain [Unknown]
  - Abscess [Unknown]
  - Furuncle [Unknown]
  - Rash pustular [Unknown]
  - Anthrax [Unknown]
